FAERS Safety Report 17028070 (Version 2)
Quarter: 2020Q1

REPORT INFORMATION
  Report Type: Spontaneous
  Country: TH (occurrence: TH)
  Receive Date: 20191113
  Receipt Date: 20200105
  Transmission Date: 20200409
  Serious: Yes (Other)
  Sender: FDA-Public Use
  Company Number: NVSC2019TH033627

PATIENT
  Age: 60 Year
  Sex: Male

DRUGS (1)
  1. VOTRIENT [Suspect]
     Active Substance: PAZOPANIB HYDROCHLORIDE
     Indication: PRODUCT USED FOR UNKNOWN INDICATION
     Dosage: UNK
     Route: 065

REACTIONS (12)
  - Hypertension [Unknown]
  - Cough [Unknown]
  - Jugular vein distension [Unknown]
  - Dyspnoea [Unknown]
  - Chest discomfort [Unknown]
  - Cardiac failure [Unknown]
  - Fatigue [Unknown]
  - Cardiac hypertrophy [Unknown]
  - Pulmonary oedema [Unknown]
  - Orthopnoea [Unknown]
  - Cardiomegaly [Unknown]
  - Oedema peripheral [Unknown]
